FAERS Safety Report 23721836 (Version 8)
Quarter: 2025Q3

REPORT INFORMATION
  Report Type: Spontaneous
  Country: EU (occurrence: EU)
  Receive Date: 20240409
  Receipt Date: 20250915
  Transmission Date: 20251021
  Serious: Yes (Hospitalization, Disabling, Other)
  Sender: MACLEODS
  Company Number: None

PATIENT

DRUGS (33)
  1. ESCITALOPRAM [Suspect]
     Active Substance: ESCITALOPRAM OXALATE
     Indication: Depression
     Dosage: 10 MILLIGRAM, QD
     Route: 048
  2. ESCITALOPRAM [Suspect]
     Active Substance: ESCITALOPRAM OXALATE
     Indication: Depression
  3. ESCITALOPRAM [Suspect]
     Active Substance: ESCITALOPRAM OXALATE
     Indication: Insomnia
  4. LEVOFLOXACIN [Suspect]
     Active Substance: LEVOFLOXACIN
     Indication: Perineal pain
     Dosage: 500 MILLIGRAM, BID, 1000 MILLIGRAM, ONCE A DAY(2 X 500 MG)
     Route: 048
  5. LEVOFLOXACIN [Suspect]
     Active Substance: LEVOFLOXACIN
     Indication: Painful ejaculation
     Dosage: 1000 MILLIGRAM, ONCE A DAY (LEVOFLOXACIN HEMIHYDRATE)
     Route: 048
  6. LEVOFLOXACIN [Suspect]
     Active Substance: LEVOFLOXACIN
     Indication: Depression
  7. TAMSULOSIN [Suspect]
     Active Substance: TAMSULOSIN
     Indication: Painful ejaculation
     Dosage: 0.4 MG, HS (SUSTAINED RELEASE) TAMSULOSIN SR PER NIGH
     Route: 042
  8. TAMSULOSIN [Suspect]
     Active Substance: TAMSULOSIN
     Indication: Perineal pain
  9. SILDENAFIL [Suspect]
     Active Substance: SILDENAFIL
     Indication: Sexual dysfunction
     Dosage: BEFORE INTERCOURSE
     Route: 065
  10. SILDENAFIL [Suspect]
     Active Substance: SILDENAFIL
     Indication: Neuropathy peripheral
     Route: 065
  11. SILDENAFIL [Suspect]
     Active Substance: SILDENAFIL
     Indication: Painful ejaculation
     Dosage: BEFORE INTERCOURSE
     Route: 065
  12. CIPROFLOXACIN [Suspect]
     Active Substance: CIPROFLOXACIN
     Indication: Painful ejaculation
     Dosage: 500 MILLIGRAM, BID, 1000 MG, ONCE DAILY (2 X 500 MG)
     Route: 048
  13. LIDOCAINE [Suspect]
     Active Substance: LIDOCAINE
     Indication: Painful ejaculation
     Route: 042
  14. LIDOCAINE [Suspect]
     Active Substance: LIDOCAINE
     Indication: Painful ejaculation
  15. DICLOFENAC [Suspect]
     Active Substance: DICLOFENAC
     Indication: Painful ejaculation
     Dosage: 50 MILLIGRAM, BID
     Route: 054
  16. PREGABALIN [Suspect]
     Active Substance: PREGABALIN
     Indication: Painful ejaculation
     Dosage: 25 MILLIGRAM, ONCE A DAY AT NIGHT
     Route: 065
  17. VALPROATE SODIUM [Suspect]
     Active Substance: VALPROATE SODIUM
     Indication: Painful ejaculation
     Route: 042
  18. VALPROATE SODIUM [Suspect]
     Active Substance: VALPROATE SODIUM
     Indication: Painful ejaculation
     Route: 042
  19. MIANSERIN [Suspect]
     Active Substance: MIANSERIN
     Indication: Depression
     Dosage: 30 MILLIGRAM
     Route: 048
  20. MIANSERIN [Suspect]
     Active Substance: MIANSERIN
     Indication: Insomnia
  21. MIANSERIN [Suspect]
     Active Substance: MIANSERIN
     Indication: Depression
     Dosage: 30 MG, QD
     Route: 048
  22. MIANSERIN [Suspect]
     Active Substance: MIANSERIN
     Indication: Insomnia
  23. MIANSERIN [Suspect]
     Active Substance: MIANSERIN
     Indication: Anxiety
  24. ALPRAZOLAM [Suspect]
     Active Substance: ALPRAZOLAM
     Indication: Fear of disease
     Dosage: 0.5 MILLIGRAM PER DAY
     Route: 065
  25. ALPRAZOLAM [Suspect]
     Active Substance: ALPRAZOLAM
     Indication: Anxiety
  26. METAMIZOLE [Suspect]
     Active Substance: METAMIZOLE
     Indication: Painful ejaculation
     Route: 065
  27. METAMIZOLE [Suspect]
     Active Substance: METAMIZOLE
     Indication: Painful ejaculation
  28. DICLOFENAC [Suspect]
     Active Substance: DICLOFENAC
     Indication: Painful ejaculation
     Dosage: 50 MG, 2 X PER DAY
  29. MAGNESIUM SULFATE [Suspect]
     Active Substance: MAGNESIUM SULFATE
     Indication: Painful ejaculation
     Route: 065
  30. MAGNESIUM SULFATE [Suspect]
     Active Substance: MAGNESIUM SULFATE
     Indication: Painful ejaculation
  31. VORTIOXETINE [Concomitant]
     Active Substance: VORTIOXETINE
     Route: 065
  32. MELATONIN [Concomitant]
     Active Substance: MELATONIN
     Indication: Insomnia
     Route: 065
  33. MELATONIN [Concomitant]
     Active Substance: MELATONIN
     Indication: Depression

REACTIONS (15)
  - Painful ejaculation [Recovered/Resolved with Sequelae]
  - Burning sensation [Not Recovered/Not Resolved]
  - Pain [Recovered/Resolved]
  - Condition aggravated [Recovering/Resolving]
  - Anxiety [Unknown]
  - Groin pain [Not Recovered/Not Resolved]
  - Drug-disease interaction [Recovered/Resolved with Sequelae]
  - Drug interaction [Recovered/Resolved]
  - Perineal pain [Recovered/Resolved with Sequelae]
  - Condition aggravated [Recovered/Resolved]
  - Therapeutic product effect incomplete [Unknown]
  - Product prescribing error [Unknown]
  - Intentional product misuse [Unknown]
  - Off label use [Unknown]
  - Product use in unapproved indication [Unknown]
